FAERS Safety Report 21247052 (Version 1)
Quarter: 2022Q3

REPORT INFORMATION
  Report Type: Spontaneous
  Country: US (occurrence: US)
  Receive Date: 20220824
  Receipt Date: 20220824
  Transmission Date: 20221027
  Serious: Yes (Death, Other)
  Sender: FDA-Public Use
  Company Number: US-AMGEN-USASP2022142488

PATIENT

DRUGS (8)
  1. FILGRASTIM [Suspect]
     Active Substance: FILGRASTIM
     Indication: Haematopoietic stem cell mobilisation
     Dosage: 10 MILLIGRAM/KILOGRAM, QD
     Route: 065
  2. MELPHALAN [Concomitant]
     Active Substance: MELPHALAN
     Dosage: 100 MILLIGRAM/SQ. METER, QD
     Route: 065
  3. CYCLOPHOSPHAMIDE [Concomitant]
     Active Substance: CYCLOPHOSPHAMIDE
     Dosage: 1.5 MICROGRAM/SQ. METER
  4. THALIDOMIDE [Concomitant]
     Active Substance: THALIDOMIDE
     Dosage: UNK, 50 TO 200 MG/DAY
  5. BORTEZOMIB [Concomitant]
     Active Substance: BORTEZOMIB
  6. DEXAMETHASONE [Concomitant]
     Active Substance: DEXAMETHASONE
     Dosage: 40 MILLIGRAM, QD (FOR EVERY 28 DAYS)
  7. LENALIDOMIDE [Concomitant]
     Active Substance: LENALIDOMIDE
     Dosage: 10 MILLIGRAM, QD (ON DAYS 1 TO 21)
  8. ZOLEDRONIC ACID [Concomitant]
     Active Substance: ZOLEDRONIC ACID
     Dosage: 4 MILLIGRAM
     Route: 042

REACTIONS (7)
  - Acute myeloid leukaemia [Fatal]
  - Plasma cell myeloma [Fatal]
  - Malignant melanoma [Unknown]
  - Papillary thyroid cancer [Unknown]
  - Breast cancer in situ [Unknown]
  - Skin cancer [Unknown]
  - Prostate cancer [Unknown]
